FAERS Safety Report 6689010-1 (Version None)
Quarter: 2010Q2

REPORT INFORMATION
  Report Type: 
  Country: None (occurrence: None)
  Receive Date: 20100420
  Receipt Date: 20100409
  Transmission Date: 20101027
  Serious: Yes (Hospitalization)
  Sender: FDA-Public Use
  Company Number: PHHY2010US02957

PATIENT
  Sex: Male
  Weight: 92.971 kg

DRUGS (1)
  1. GLEEVEC [Suspect]
     Indication: CHRONIC MYELOID LEUKAEMIA
     Dosage: 400 MG DAILY
     Route: 048
     Dates: start: 20070710, end: 20100328

REACTIONS (5)
  - ANKLE OPERATION [None]
  - BONE OPERATION [None]
  - FALL [None]
  - IMPAIRED HEALING [None]
  - LOWER LIMB FRACTURE [None]
